FAERS Safety Report 4403586-6 (Version None)
Quarter: 2004Q3

REPORT INFORMATION
  Report Type: 
  Country: None (occurrence: None)
  Receive Date: 20040721
  Receipt Date: 20040709
  Transmission Date: 20050211
  Serious: Yes (Other)
  Sender: FDA-Public Use
  Company Number: 12627261

PATIENT
  Age: 28 Year
  Sex: Male

DRUGS (2)
  1. LAMIVUDINE [Suspect]
     Indication: HEPATITIS B VIRUS
     Route: 048
     Dates: start: 20030721, end: 20040622
  2. ENTECAVIR [Suspect]
     Indication: HEPATITIS B VIRUS
     Route: 048
     Dates: start: 20030721, end: 20040622

REACTIONS (2)
  - ALANINE AMINOTRANSFERASE INCREASED [None]
  - ASPARTATE AMINOTRANSFERASE INCREASED [None]
